FAERS Safety Report 11514482 (Version 1)
Quarter: 2015Q3

REPORT INFORMATION
  Report Type: Spontaneous
  Country: BR (occurrence: BR)
  Receive Date: 20150916
  Receipt Date: 20150916
  Transmission Date: 20151125
  Serious: Yes (Hospitalization)
  Sender: FDA-Public Use
  Company Number: BR-PFIZER INC-2015309931

PATIENT
  Age: 61 Year
  Sex: Female
  Weight: 60 kg

DRUGS (6)
  1. PREMARIN [Concomitant]
     Active Substance: ESTROGENS, CONJUGATED
     Indication: OOPHORECTOMY
  2. PIROXICAM. [Concomitant]
     Active Substance: PIROXICAM
     Indication: SPINAL OSTEOARTHRITIS
     Dosage: UNK
     Route: 048
  3. PREMARIN [Concomitant]
     Active Substance: ESTROGENS, CONJUGATED
     Indication: HYSTERECTOMY
     Dosage: UNK
  4. EPREX [Concomitant]
     Active Substance: ERYTHROPOIETIN
     Indication: THALASSAEMIA
     Dosage: UNK
     Dates: start: 1995, end: 1995
  5. ATENOLOL. [Suspect]
     Active Substance: ATENOLOL
     Indication: HYPERTENSION
     Dosage: 50 MG, 1X/DAY
     Route: 048
     Dates: start: 1965
  6. CENTRUM SELECT [Concomitant]
     Active Substance: VITAMINS
     Indication: ASTHENIA
     Dosage: 1 DF, 1X/DAY
     Route: 048
     Dates: start: 20150807, end: 20150807

REACTIONS (9)
  - Weight decreased [Not Recovered/Not Resolved]
  - Blood pressure increased [Recovered/Resolved]
  - Asthenia [Unknown]
  - Drug ineffective [Recovered/Resolved]
  - Malaise [Recovered/Resolved]
  - Renal disorder [Recovered/Resolved]
  - Peripheral swelling [Recovered/Resolved]
  - Hypertrichosis [Unknown]
  - Leiomyoma [Recovered/Resolved]

NARRATIVE: CASE EVENT DATE: 2000
